FAERS Safety Report 8385783-0 (Version None)
Quarter: 2012Q2

REPORT INFORMATION
  Report Type: 
  Country: None (occurrence: None)
  Receive Date: 20120523
  Receipt Date: 20120523
  Transmission Date: 20120825
  Serious: Yes (Life-Threatening, Other)
  Sender: FDA-Public Use
  Company Number: None

PATIENT
  Age: 73 Year
  Sex: Male
  Weight: 83.9154 kg

DRUGS (1)
  1. PICATO [Suspect]
     Indication: HYPERKERATOSIS
     Dosage: ON TUBE ONE DAY ONLY
     Dates: start: 20120507, end: 20120507

REACTIONS (3)
  - DISCOMFORT [None]
  - URTICARIA [None]
  - DRUG PRESCRIBING ERROR [None]
